FAERS Safety Report 10210380 (Version 2)
Quarter: 2014Q3

REPORT INFORMATION
  Report Type: Spontaneous
  Country: JP (occurrence: JP)
  Receive Date: 20140602
  Receipt Date: 20140804
  Transmission Date: 20150326
  Serious: Yes (Death, Life-Threatening)
  Sender: FDA-Public Use
  Company Number: JP-ASTRAZENECA-2014SE37092

PATIENT
  Age: 39 Day
  Sex: Male
  Weight: 1 kg

DRUGS (3)
  1. DIAZEPAM. [Suspect]
     Active Substance: DIAZEPAM
     Indication: SEDATION
     Route: 064
  2. BETAMETHASONE [Suspect]
     Active Substance: BETAMETHASONE
     Indication: MATERNAL THERAPY TO ENHANCE FOETAL LUNG MATURITY
     Route: 064
  3. DIPRIVAN [Suspect]
     Active Substance: PROPOFOL
     Indication: SEDATION
     Route: 064

REACTIONS (7)
  - Histiocytosis haematophagic [Unknown]
  - Renal failure [Fatal]
  - Localised oedema [Unknown]
  - Hepatic failure [Fatal]
  - Systemic candida [Unknown]
  - Disseminated intravascular coagulation [Fatal]
  - Apnoeic attack [Unknown]
